FAERS Safety Report 4662347-3 (Version None)
Quarter: 2005Q2

REPORT INFORMATION
  Report Type: 
  Country: None (occurrence: None)
  Receive Date: 20050516
  Receipt Date: 20050502
  Transmission Date: 20051028
  Serious: Yes (Hospitalization)
  Sender: FDA-Public Use
  Company Number: US-JNJFOC-20050500431

PATIENT
  Age: 57 Year
  Sex: Male

DRUGS (2)
  1. DOXIL [Suspect]
     Indication: MULTIPLE MYELOMA
     Dosage: 40MG/M2 X2 CYCLES
     Route: 042
  2. DEXAMETHASONE [Concomitant]
     Indication: MULTIPLE MYELOMA

REACTIONS (3)
  - CARDIAC FAILURE CONGESTIVE [None]
  - CARDIOMYOPATHY [None]
  - MYOCARDIAL ISCHAEMIA [None]
